FAERS Safety Report 5891878-3 (Version None)
Quarter: 2008Q3

REPORT INFORMATION
  Report Type: 
  Country: None (occurrence: None)
  Receive Date: 20080908
  Receipt Date: 20080523
  Transmission Date: 20090109
  Serious: No
  Sender: FDA-Public Use
  Company Number: 002#1#2008-00489

PATIENT
  Age: 87 Year
  Sex: Male

DRUGS (4)
  1. NEUPRO [Suspect]
     Indication: PARKINSON'S DISEASE
     Dosage: 6MG/24H, 1 IN 1 D, TRANSDERMAL
     Route: 062
  2. PARCOPA [Concomitant]
  3. SELEGELINE [Concomitant]
  4. TASMAR [Concomitant]

REACTIONS (3)
  - DECUBITUS ULCER [None]
  - HYPOPHAGIA [None]
  - MUSCLE RIGIDITY [None]
